FAERS Safety Report 8792482 (Version 1)
Quarter: 2012Q4

REPORT INFORMATION
  Report Type: 
  Country: US (occurrence: US)
  Receive Date: 20120918
  Receipt Date: 20120918
  Transmission Date: 20130627
  Serious: Yes (Other)
  Sender: FDA-Public Use
  Company Number: US-AMGEN-USASP2012058379

PATIENT
  Age: 76 Year
  Sex: Female

DRUGS (8)
  1. PROLIA [Suspect]
     Indication: OSTEOPOROSIS POSTMENOPAUSAL
     Dosage: UNK UNK, q6mo
  2. POTASSIUM [Concomitant]
  3. PEPCID                             /00706001/ [Concomitant]
  4. LOMOTIL [Concomitant]
  5. MAGNESIUM OXIDE [Concomitant]
  6. CELEXA                             /00582602/ [Concomitant]
  7. VITAMIN B-12 [Concomitant]
  8. AMBIEN [Concomitant]

REACTIONS (2)
  - Depression [Unknown]
  - Pain in extremity [Recovering/Resolving]
